FAERS Safety Report 21438803 (Version 1)
Quarter: 2022Q4

REPORT INFORMATION
  Report Type: Spontaneous
  Country: US (occurrence: US)
  Receive Date: 20221011
  Receipt Date: 20221011
  Transmission Date: 20230112
  Serious: Yes (Other)
  Sender: FDA-Public Use
  Company Number: US-ASTELLAS-2022US035879

PATIENT
  Age: 71 Year
  Sex: Male

DRUGS (2)
  1. XTANDI [Suspect]
     Active Substance: ENZALUTAMIDE
     Indication: Product used for unknown indication
     Route: 065
  2. XTANDI [Suspect]
     Active Substance: ENZALUTAMIDE
     Dosage: 2 CAPSULES ONCE DAILY AND OCCASIONALLY ONE CAPSULES PER DAY
     Route: 065

REACTIONS (6)
  - Malignant neoplasm progression [Unknown]
  - Back pain [Unknown]
  - Cancer pain [Unknown]
  - Restless legs syndrome [Unknown]
  - Confusional state [Unknown]
  - Fatigue [Unknown]
